FAERS Safety Report 8480867-0 (Version None)
Quarter: 2012Q3

REPORT INFORMATION
  Report Type: 
  Country: None (occurrence: None)
  Receive Date: 20120702
  Receipt Date: 20120625
  Transmission Date: 20120928
  Serious: Yes (Hospitalization, Other)
  Sender: FDA-Public Use
  Company Number: US-BAYER-2012-063950

PATIENT
  Age: 20 Year
  Sex: Female
  Weight: 59.41 kg

DRUGS (4)
  1. CHERATUSSIN [AMMONIUM CHLORIDE,DEXTROMETHORPHAN HYDROBROMIDE,SODIU [Concomitant]
     Dosage: UNK
     Dates: start: 20100225
  2. YAZ [Suspect]
  3. YASMIN [Suspect]
  4. DROSPIRENONE AND ETHINYL ESTRADIOL [Suspect]

REACTIONS (2)
  - PULMONARY EMBOLISM [None]
  - DEEP VEIN THROMBOSIS [None]
